FAERS Safety Report 6419595-1 (Version None)
Quarter: 2009Q4

REPORT INFORMATION
  Report Type: 
  Country: None (occurrence: None)
  Receive Date: 20091029
  Receipt Date: 20091022
  Transmission Date: 20100525
  Serious: Yes (Hospitalization)
  Sender: FDA-Public Use
  Company Number: FR-AVENTIS-200913916FR

PATIENT
  Age: 70 Year
  Sex: Male

DRUGS (12)
  1. CLAFORAN [Suspect]
     Route: 042
     Dates: start: 20090925, end: 20091012
  2. CLAMOXYL                           /00249601/ [Concomitant]
     Dates: end: 20090925
  3. AMIKLIN                            /00391001/ [Concomitant]
     Dates: end: 20090925
  4. HEPARIN [Concomitant]
     Indication: THROMBOSIS PROPHYLAXIS
  5. HEMISUCCINATE OF HYDROCORTISONE [Concomitant]
  6. LEVOTHYROXINE SODIUM [Concomitant]
     Indication: HYPOTHYROIDISM
  7. DOSTINEX [Concomitant]
     Route: 048
  8. NEXIUM [Concomitant]
     Indication: PROPHYLAXIS
     Route: 048
  9. MORPHINE [Concomitant]
  10. PERFALGAN [Concomitant]
     Indication: PAIN
  11. EUPRESSYL                          /00631801/ [Concomitant]
     Dates: start: 20091006, end: 20091008
  12. COVERSYL                           /00790701/ [Concomitant]
     Dates: start: 20091008, end: 20091012

REACTIONS (2)
  - AGRANULOCYTOSIS [None]
  - OVERDOSE [None]
